FAERS Safety Report 7389762-1 (Version None)
Quarter: 2011Q2

REPORT INFORMATION
  Report Type: 
  Country: None (occurrence: None)
  Receive Date: 20110401
  Receipt Date: 20110325
  Transmission Date: 20111010
  Serious: Yes (Death, Other)
  Sender: FDA-Public Use
  Company Number: US-GENZYME-FLUD-1000930

PATIENT
  Age: 62 Year

DRUGS (5)
  1. FLUDARA [Suspect]
     Indication: MYELOFIBROSIS
     Dosage: 30 MG/M2 X 4
     Route: 065
  2. TACROLIMUS [Concomitant]
     Indication: PROPHYLAXIS AGAINST GRAFT VERSUS HOST DISEASE
     Route: 065
  3. CAMPATH [Suspect]
     Indication: STEM CELL TRANSPLANT
  4. FLUDARA [Suspect]
     Indication: STEM CELL TRANSPLANT
  5. CAMPATH [Suspect]
     Indication: MYELOFIBROSIS
     Dosage: 4 X 10 MG/KG
     Route: 065

REACTIONS (2)
  - ENGRAFT FAILURE [None]
  - NEOPLASM MALIGNANT [None]
